FAERS Safety Report 10262571 (Version 1)
Quarter: 2014Q2

REPORT INFORMATION
  Report Type: Report from Study
  Country: US (occurrence: US)
  Receive Date: 20140626
  Receipt Date: 20140626
  Transmission Date: 20141212
  Serious: Yes (Other)
  Sender: FDA-Public Use
  Company Number: US-BAXTER-2014BAX034286

PATIENT
  Age: 69 Year
  Sex: Female

DRUGS (5)
  1. GAMMAGARD LIQUID [Suspect]
     Indication: PRODUCT USED FOR UNKNOWN INDICATION
     Route: 058
  2. GAMMAGARD LIQUID [Suspect]
     Route: 058
     Dates: start: 201406
  3. GAMMAGARD LIQUID [Suspect]
     Route: 058
     Dates: start: 201406, end: 201406
  4. GAMMAGARD LIQUID [Suspect]
     Route: 058
     Dates: start: 201406, end: 201406
  5. PREDNISONE [Concomitant]
     Indication: PRODUCT USED FOR UNKNOWN INDICATION
     Route: 065
     Dates: start: 201406

REACTIONS (3)
  - Depressed level of consciousness [Unknown]
  - Confusional state [Unknown]
  - Dizziness [Unknown]
